FAERS Safety Report 18597559 (Version 3)
Quarter: 2021Q1

REPORT INFORMATION
  Report Type: Report from Study
  Country: US (occurrence: US)
  Receive Date: 20201209
  Receipt Date: 20210108
  Transmission Date: 20210419
  Serious: Yes (Hospitalization, Other)
  Sender: FDA-Public Use
  Company Number: US-009507513-2012USA003650

PATIENT
  Age: 78 Year
  Sex: Male

DRUGS (11)
  1. PEMBROLIZUMAB. [Suspect]
     Active Substance: PEMBROLIZUMAB
     Dosage: UNKNOWN DOSE, EVERY 3 WEEKS (Q3W)
     Route: 042
     Dates: start: 20201130
  2. PREGABALIN. [Concomitant]
     Active Substance: PREGABALIN
     Dosage: 75 MILLIGRAM, 3 TIMES DAILY (TID)
  3. AMLODIPINE BESYLATE. [Concomitant]
     Active Substance: AMLODIPINE BESYLATE
     Dosage: 5 MILLIGRAM, DAILY (QD)
  4. NATURES BOUNTY B COMPLEX WITH B12 [Concomitant]
  5. UBIDECARENONE. [Concomitant]
     Active Substance: UBIDECARENONE
     Dosage: 10 MILLILITER, DAILY (QD)
  6. RAMIPRIL. [Concomitant]
     Active Substance: RAMIPRIL
     Dosage: 5 MILLIGRAM, ONCE DAILY (QD)
  7. POTASSIUM CHLORIDE. [Concomitant]
     Active Substance: POTASSIUM CHLORIDE
     Dosage: 10 MEQ, BID
  8. HYDROCHLOROTHIAZIDE. [Concomitant]
     Active Substance: HYDROCHLOROTHIAZIDE
     Dosage: 25 MILLIGRAM, DAILY (QD)
  9. PEMBROLIZUMAB. [Suspect]
     Active Substance: PEMBROLIZUMAB
     Indication: OESOPHAGEAL CARCINOMA
     Dosage: UNKNOWN DOSE, EVERY 3 WEEKS (Q3W)
     Route: 042
     Dates: start: 20201109
  10. CELECOXIB. [Concomitant]
     Active Substance: CELECOXIB
     Dosage: 100 MILLIGRAM, ONCE DAILY (QD)
  11. PRAVASTATIN SODIUM. [Concomitant]
     Active Substance: PRAVASTATIN SODIUM
     Dosage: 10 MILLIGRAM, DAILY (QD)

REACTIONS (4)
  - Dysphagia [Recovering/Resolving]
  - Inadequate diet [Unknown]
  - Foreign body in throat [Recovering/Resolving]
  - Cerebral disorder [Unknown]

NARRATIVE: CASE EVENT DATE: 2020
